FAERS Safety Report 8985538 (Version 1)
Quarter: 2012Q4

REPORT INFORMATION
  Report Type: 
  Country: FR (occurrence: FR)
  Receive Date: 20121226
  Receipt Date: 20121226
  Transmission Date: 20130627
  Serious: Yes (Other)
  Sender: FDA-Public Use
  Company Number: FR-ASTRAZENECA-2012SE94700

PATIENT
  Age: 22740 Day
  Sex: Female

DRUGS (9)
  1. MERONEM [Suspect]
     Indication: BRAIN ABSCESS
     Route: 042
     Dates: start: 20120920, end: 20121126
  2. KEPPRA [Concomitant]
  3. SPECIAFOLDINE [Concomitant]
  4. SONDALIS [Concomitant]
  5. CONTRAMAL [Concomitant]
  6. KEAL [Concomitant]
  7. UVEDOSE [Concomitant]
  8. ATARAX [Concomitant]
  9. PERFALGAN [Concomitant]

REACTIONS (1)
  - Hypersensitivity [Recovering/Resolving]
